FAERS Safety Report 26217328 (Version 1)
Quarter: 2025Q4

REPORT INFORMATION
  Report Type: Report from Study
  Country: US (occurrence: US)
  Receive Date: 20251231
  Receipt Date: 20251231
  Transmission Date: 20260118
  Serious: No
  Sender: ACADIA PHARMACEUTICALS
  Company Number: US-ACADIA PHARMACEUTICALS INC.-ACA-2025-PIM-013667

PATIENT
  Sex: Male

DRUGS (13)
  1. NUPLAZID [Suspect]
     Active Substance: PIMAVANSERIN TARTRATE
     Indication: Parkinson^s disease
     Dosage: 34 MILLIGRAM, QD
     Route: 048
     Dates: start: 20251126
  2. ALENDRONATE [Concomitant]
     Active Substance: ALENDRONATE SODIUM
  3. AMANTADINE HYDROCHLORIDE [Concomitant]
     Active Substance: AMANTADINE HYDROCHLORIDE
  4. BRIMONIDINE [Concomitant]
     Active Substance: BRIMONIDINE TARTRATE
  5. BRINZOLAMIDE [Concomitant]
     Active Substance: BRINZOLAMIDE
  6. CREXONT [Concomitant]
     Active Substance: CARBIDOPA\LEVODOPA
  7. LATANOPROST [Concomitant]
     Active Substance: LATANOPROST
  8. MONTELUKAST [Concomitant]
     Active Substance: MONTELUKAST
  9. MYRBETRIQ [Concomitant]
     Active Substance: MIRABEGRON
  10. OMEPRAZOLE [Concomitant]
     Active Substance: OMEPRAZOLE
  11. RASAGILINE MESYLATE [Concomitant]
     Active Substance: RASAGILINE MESYLATE
  12. TIMOLOL MALEATE [Concomitant]
     Active Substance: TIMOLOL MALEATE
  13. ASCORBIC ACID\ZINC [Concomitant]
     Active Substance: ASCORBIC ACID\ZINC

REACTIONS (1)
  - Product dose omission issue [Unknown]
